FAERS Safety Report 23494202 (Version 2)
Quarter: 2024Q1

REPORT INFORMATION
  Report Type: Spontaneous
  Country: CZ (occurrence: CZ)
  Receive Date: 20240207
  Receipt Date: 20240212
  Transmission Date: 20240410
  Serious: No
  Sender: FDA-Public Use
  Company Number: CZ-Korea IPSEN-2024-01939

PATIENT
  Age: 5 Month
  Sex: Male

DRUGS (2)
  1. TAZEMETOSTAT HYDROBROMIDE [Suspect]
     Active Substance: TAZEMETOSTAT HYDROBROMIDE
     Indication: Rhabdoid tumour
     Dosage: 2X1200 MG/M2
     Route: 065
  2. TAZEMETOSTAT HYDROBROMIDE [Suspect]
     Active Substance: TAZEMETOSTAT HYDROBROMIDE
     Indication: Off label use
     Dosage: 2X 950 MG/M2
     Route: 065

REACTIONS (1)
  - Blood bromide increased [Unknown]
